FAERS Safety Report 17087736 (Version 1)
Quarter: 2019Q4

REPORT INFORMATION
  Report Type: Spontaneous
  Country: US (occurrence: US)
  Receive Date: 20191128
  Receipt Date: 20191128
  Transmission Date: 20200122
  Serious: No
  Sender: FDA-Public Use
  Company Number: US-UCBSA-2018032173

PATIENT
  Sex: Female

DRUGS (4)
  1. LEVETIRACETAM. [Suspect]
     Active Substance: LEVETIRACETAM
     Indication: SEIZURE
     Dosage: 20 MG/KG
  2. PHENOBARBITAL. [Concomitant]
     Active Substance: PHENOBARBITAL
     Dosage: MAINTENANCE DOSE OF 5 MG/KG/DAY.
  3. PHENOBARBITAL. [Concomitant]
     Active Substance: PHENOBARBITAL
     Indication: SEIZURE
     Dosage: 2  LOADING DOSES
  4. PHENOBARBITAL. [Concomitant]
     Active Substance: PHENOBARBITAL
     Dosage: 20 MG/KG

REACTIONS (2)
  - Drug ineffective [Unknown]
  - Off label use [Unknown]
